FAERS Safety Report 23781450 (Version 1)
Quarter: 2024Q2

REPORT INFORMATION
  Report Type: Spontaneous
  Country: CH (occurrence: CH)
  Receive Date: 20240425
  Receipt Date: 20240425
  Transmission Date: 20240716
  Serious: Yes (Death)
  Sender: FDA-Public Use
  Company Number: CH-MLMSERVICE-20240409-PI019558-00275-2

PATIENT
  Age: 49 Year
  Sex: Male

DRUGS (13)
  1. QUETIAPINE [Suspect]
     Active Substance: QUETIAPINE
     Indication: Schizophrenia
     Route: 065
  2. QUETIAPINE [Suspect]
     Active Substance: QUETIAPINE
     Indication: Malignant catatonia
  3. AMANTADINE [Concomitant]
     Active Substance: AMANTADINE
     Indication: Schizophrenia
     Dosage: UNKNOWN
     Route: 065
  4. AMANTADINE [Concomitant]
     Active Substance: AMANTADINE
  5. ENOXAPARIN [Concomitant]
     Active Substance: ENOXAPARIN
     Dosage: UNKNOWN
     Route: 065
  6. DIAZEPAM [Concomitant]
     Active Substance: DIAZEPAM
     Indication: Status epilepticus
     Dosage: TITRATED TO 12.5 MG FOUR TIMES A DAY
     Route: 042
  7. DIAZEPAM [Concomitant]
     Active Substance: DIAZEPAM
     Dosage: TITRATED TO 12.5 MG FOUR TIMES A DAY
     Route: 042
  8. OLANZAPINE [Concomitant]
     Active Substance: OLANZAPINE
     Dosage: TITRATED
     Route: 065
  9. OLANZAPINE [Concomitant]
     Active Substance: OLANZAPINE
     Indication: Schizophrenia
     Dosage: TITRATED TO A DOSE OF 20 MG NIGHTLY
     Route: 065
  10. OLANZAPINE [Concomitant]
     Active Substance: OLANZAPINE
     Dosage: AT NIGHT
     Route: 065
  11. OLANZAPINE [Concomitant]
     Active Substance: OLANZAPINE
     Dosage: AT BEDTIME
     Route: 065
  12. VALPROIC ACID [Concomitant]
     Active Substance: VALPROIC ACID
     Indication: Status epilepticus
     Dosage: 800 MG THREE TIMES A DAY
     Route: 042
  13. PROPOFOL [Concomitant]
     Active Substance: PROPOFOL
     Indication: Sedation
     Dosage: UNKNOWN
     Route: 065

REACTIONS (3)
  - Pneumonia aspiration [Fatal]
  - Respiratory arrest [Fatal]
  - Pyrexia [Unknown]
